FAERS Safety Report 21270016 (Version 2)
Quarter: 2022Q4

REPORT INFORMATION
  Report Type: Spontaneous
  Country: US (occurrence: None)
  Receive Date: 20220830
  Receipt Date: 20221011
  Transmission Date: 20230113
  Serious: Yes (Hospitalization)
  Sender: FDA-Public Use
  Company Number: 2022A296476

PATIENT
  Sex: Female

DRUGS (4)
  1. BUDESONIDE\FORMOTEROL\GLYCOPYRRONIUM [Suspect]
     Active Substance: BUDESONIDE\FORMOTEROL\GLYCOPYRRONIUM
     Indication: Chronic obstructive pulmonary disease
     Dosage: 160/9/4.8 MCG., 2 PUFFS TWICE DAY
     Route: 055
     Dates: start: 202104
  2. BUDESONIDE\FORMOTEROL\GLYCOPYRRONIUM [Suspect]
     Active Substance: BUDESONIDE\FORMOTEROL\GLYCOPYRRONIUM
     Indication: Emphysema
     Dosage: 160/9/4.8 MCG., 2 PUFFS TWICE DAY
     Route: 055
     Dates: start: 202104
  3. BEVESPI AEROSPHERE [Suspect]
     Active Substance: FORMOTEROL FUMARATE\GLYCOPYRROLATE
     Indication: Chronic obstructive pulmonary disease
     Dosage: 2 PUFFS TWICE A DAY
     Route: 055
  4. BEVESPI AEROSPHERE [Suspect]
     Active Substance: FORMOTEROL FUMARATE\GLYCOPYRROLATE
     Indication: Emphysema
     Dosage: 2 PUFFS TWICE A DAY
     Route: 055

REACTIONS (4)
  - Respiratory disorder [Not Recovered/Not Resolved]
  - Hearing aid user [Not Recovered/Not Resolved]
  - Memory impairment [Not Recovered/Not Resolved]
  - Device malfunction [Unknown]
